FAERS Safety Report 16996812 (Version 1)
Quarter: 2019Q4

REPORT INFORMATION
  Report Type: Other
  Country: RO (occurrence: RO)
  Receive Date: 20191105
  Receipt Date: 20191105
  Transmission Date: 20200122
  Serious: Yes (Other)
  Sender: FDA-Public Use
  Company Number: RO-ALSI-201900452

PATIENT
  Age: 65 Year
  Sex: Male

DRUGS (6)
  1. OXYGEN. [Suspect]
     Active Substance: OXYGEN
     Indication: ACUTE RESPIRATORY FAILURE
     Route: 055
  2. LINEZOLID. [Suspect]
     Active Substance: LINEZOLID
  3. CLINDAMYCIN. [Suspect]
     Active Substance: CLINDAMYCIN
  4. AMINO ACIDS [Suspect]
     Active Substance: AMINO ACIDS, SOURCE UNSPECIFIED
  5. DOPAMINE [Suspect]
     Active Substance: DOPAMINE HYDROCHLORIDE
  6. NOREPINEPHRINE. [Suspect]
     Active Substance: NOREPINEPHRINE

REACTIONS (2)
  - Drug ineffective [Unknown]
  - Condition aggravated [Unknown]
